FAERS Safety Report 5533361-0 (Version None)
Quarter: 2007Q4

REPORT INFORMATION
  Report Type: 
  Country: None (occurrence: None)
  Receive Date: 20071204
  Receipt Date: 20071126
  Transmission Date: 20080405
  Serious: Yes (Other)
  Sender: FDA-Public Use
  Company Number: US-ELI_LILLY_AND_COMPANY-US200711005641

PATIENT
  Sex: Female

DRUGS (4)
  1. CYMBALTA [Suspect]
     Dosage: 40 MG, DAILY (1/D)
     Dates: start: 20061001, end: 20071022
  2. CYMBALTA [Suspect]
     Dosage: 60 MG, DAILY (1/D)
     Dates: start: 20071023
  3. KLONOPIN [Concomitant]
     Dosage: 0.5 MG, DAILY (1/D)
  4. AMBIEN [Concomitant]
     Dosage: 10 MG, AS NEEDED

REACTIONS (2)
  - SINUS OPERATION [None]
  - TONSILLECTOMY [None]
